FAERS Safety Report 10498633 (Version 2)
Quarter: 2014Q4

REPORT INFORMATION
  Report Type: Spontaneous
  Country: JP (occurrence: JP)
  Receive Date: 20141006
  Receipt Date: 20141006
  Transmission Date: 20150528
  Serious: Yes (Hospitalization)
  Sender: FDA-Public Use
  Company Number: PHHY2014JP125452

PATIENT
  Age: 65 Year
  Sex: Female

DRUGS (1)
  1. AMANTADINE [Suspect]
     Active Substance: AMANTADINE
     Indication: PRODUCT USED FOR UNKNOWN INDICATION
     Route: 048

REACTIONS (13)
  - Tremor [Recovering/Resolving]
  - Renal impairment [Unknown]
  - Gait disturbance [Recovering/Resolving]
  - Dysphagia [Unknown]
  - Face oedema [Unknown]
  - Dyskinesia [Recovering/Resolving]
  - Dysarthria [Recovering/Resolving]
  - Toxicity to various agents [Unknown]
  - Disorientation [Recovering/Resolving]
  - Depressed level of consciousness [Recovering/Resolving]
  - Thirst [Unknown]
  - Fluid intake reduced [Unknown]
  - Oedema peripheral [Unknown]
